FAERS Safety Report 10162444 (Version 2)
Quarter: 2014Q2

REPORT INFORMATION
  Report Type: Spontaneous
  Country: JP (occurrence: JP)
  Receive Date: 20140509
  Receipt Date: 20140528
  Transmission Date: 20141212
  Serious: Yes (Death)
  Sender: FDA-Public Use
  Company Number: JP-ASTRAZENECA-2014SE30857

PATIENT
  Sex: 0

DRUGS (4)
  1. SEROQUEL [Suspect]
     Indication: DEMENTIA
     Route: 048
  2. SEROQUEL [Suspect]
     Indication: DEMENTIA
     Route: 048
  3. EXELON [Suspect]
     Indication: DEMENTIA
     Route: 062
  4. EXELON [Suspect]
     Indication: DEMENTIA
     Route: 062

REACTIONS (2)
  - Hepatic function abnormal [Fatal]
  - Off label use [Unknown]
